FAERS Safety Report 20201419 (Version 2)
Quarter: 2022Q1

REPORT INFORMATION
  Report Type: Spontaneous
  Country: GB (occurrence: None)
  Receive Date: 20211217
  Receipt Date: 20220120
  Transmission Date: 20220423
  Serious: Yes (Death, Other)
  Sender: FDA-Public Use
  Company Number: None

PATIENT
  Age: 15 Year
  Sex: Male

DRUGS (8)
  1. FYCOMPA [Suspect]
     Active Substance: PERAMPANEL
     Indication: Epilepsy
     Dosage: DOSE UNKNOWN
     Route: 048
     Dates: start: 202002, end: 20200409
  2. RUFINAMIDE [Suspect]
     Active Substance: RUFINAMIDE
     Indication: Epilepsy
     Route: 048
  3. ZONISAMIDE [Suspect]
     Active Substance: ZONISAMIDE
     Indication: Epilepsy
     Dosage: 100MG IN PM, 50 MG IN AM
     Route: 048
     Dates: start: 2017, end: 20200410
  4. SULTHIAME [Suspect]
     Active Substance: SULTHIAME
     Indication: Epilepsy
     Route: 048
  5. PREDNISOLONE [Suspect]
     Active Substance: PREDNISOLONE
     Indication: Epilepsy
     Route: 048
     Dates: start: 201803, end: 201803
  6. LACOSAMIDE [Suspect]
     Active Substance: LACOSAMIDE
     Indication: Epilepsy
     Dosage: DOSE AND FREQUENCY UNKNOWN
     Route: 065
     Dates: start: 201803, end: 201803
  7. BRIVIACT [Suspect]
     Active Substance: BRIVARACETAM
     Indication: Epilepsy
     Route: 048
     Dates: start: 201803, end: 201806
  8. BRIVIACT [Suspect]
     Active Substance: BRIVARACETAM
     Route: 048
     Dates: start: 201806, end: 201806

REACTIONS (7)
  - Sudden unexplained death in epilepsy [Fatal]
  - Aggression [Not Recovered/Not Resolved]
  - Body temperature fluctuation [Unknown]
  - Psychotic disorder [Recovered/Resolved with Sequelae]
  - Hallucination, auditory [Not Recovered/Not Resolved]
  - Depressed mood [Unknown]
  - Fatigue [Unknown]

NARRATIVE: CASE EVENT DATE: 20180301
